FAERS Safety Report 4492338-7 (Version None)
Quarter: 2004Q3

REPORT INFORMATION
  Report Type: 
  Country: None (occurrence: None)
  Receive Date: 20040921
  Receipt Date: 20040317
  Transmission Date: 20050211
  Serious: Yes (Hospitalization)
  Sender: FDA-Public Use
  Company Number: 163-20785-04030481

PATIENT
  Age: 41 Year
  Sex: Male

DRUGS (21)
  1. THALOMID [Suspect]
     Indication: MULTIPLE MYELOMA
     Dosage: 400 MG, QD, ORAL
     Route: 048
     Dates: start: 20031110
  2. VINCRISTINE [Suspect]
     Indication: MULTIPLE MYELOMA
     Dosage: 0.5 MG, QD, INTAVENOUS
     Route: 042
     Dates: start: 20031110, end: 20031113
  3. ADRIAMYCIN PFS [Suspect]
     Indication: MULTIPLE MYELOMA
     Dosage: 10MG/M^2
     Dates: start: 20031110, end: 20031113
  4. DEXAMETHASONE [Suspect]
     Indication: MULTIPLE MYELOMA
     Dosage: 40 MG, QD, INTRAVENOUS
     Route: 042
     Dates: start: 20031110, end: 20031113
  5. DEXAMETHASONE [Suspect]
     Indication: MULTIPLE MYELOMA
     Dosage: 40 MG, QD, INTRAVENOUS
     Route: 042
     Dates: start: 20031108, end: 20031121
  6. DEXAMETHASONE [Suspect]
     Indication: MULTIPLE MYELOMA
     Dosage: 40 MG, QD, INTRAVENOUS
     Route: 042
     Dates: start: 20031126, end: 20031129
  7. DEXAMETHASONE [Suspect]
     Indication: MULTIPLE MYELOMA
     Dosage: 40 MG, QD, INTRAVENOUS
     Route: 042
     Dates: start: 20040108, end: 20040111
  8. CYCLOPHOSPHAMIDE [Suspect]
     Dosage: 400MG/M^2, INTRAVENOUS
     Route: 042
     Dates: start: 20040108, end: 20040111
  9. ETOPOSIDE [Suspect]
     Dosage: 40MG/M^2, INTRAVENOUS
     Route: 042
     Dates: start: 20040108, end: 20040111
  10. CISPLATIN [Suspect]
     Dosage: 15MG/M^2, INTRAVENOUS
     Route: 042
     Dates: start: 20040108, end: 20040111
  11. ACYCLOVIR [Concomitant]
  12. MIRALAX [Concomitant]
  13. FLOMAX (TAMSOLUSIN HYDROCHLORIDE) [Concomitant]
  14. PAXIL [Concomitant]
  15. NEURONTIN [Concomitant]
  16. DIFLUCAN [Concomitant]
  17. OXYCONTIN [Concomitant]
  18. ATIVAN [Concomitant]
  19. SENOKOT [Concomitant]
  20. OXYCODONE (OXYCODONE) [Concomitant]
  21. COUMADIN [Concomitant]

REACTIONS (10)
  - ARTHRALGIA [None]
  - CATHETER RELATED COMPLICATION [None]
  - DEHYDRATION [None]
  - FATIGUE [None]
  - NAUSEA [None]
  - NEUROPATHY PERIPHERAL [None]
  - OEDEMA PERIPHERAL [None]
  - STAPHYLOCOCCAL BACTERAEMIA [None]
  - THROMBOSIS [None]
  - VOMITING [None]
